FAERS Safety Report 22273028 (Version 9)
Quarter: 2024Q1

REPORT INFORMATION
  Report Type: Report from Study
  Country: BG (occurrence: BG)
  Receive Date: 20230502
  Receipt Date: 20240306
  Transmission Date: 20240410
  Serious: Yes (Hospitalization, Other)
  Sender: FDA-Public Use
  Company Number: BG-TAKEDA-2022TUS016384

PATIENT
  Age: 81 Year
  Sex: Female
  Weight: 85 kg

DRUGS (2)
  1. VEDOLIZUMAB [Suspect]
     Active Substance: VEDOLIZUMAB
     Indication: Colitis ulcerative
     Dosage: 300 MILLIGRAM
     Route: 042
     Dates: start: 20210414
  2. ELIQUIS [Suspect]
     Active Substance: APIXABAN
     Indication: Product used for unknown indication
     Dosage: UNK
     Route: 065

REACTIONS (22)
  - Respiratory tract infection bacterial [Unknown]
  - Haematochezia [Unknown]
  - Visual impairment [Unknown]
  - Foot fracture [Unknown]
  - Fall [Unknown]
  - Skin laceration [Unknown]
  - Intervertebral disc disorder [Unknown]
  - Memory impairment [Unknown]
  - Eructation [Unknown]
  - Mucous stools [Unknown]
  - Dyschezia [Unknown]
  - Faecal volume decreased [Unknown]
  - Blastocystis infection [Unknown]
  - Insomnia [Unknown]
  - Drug ineffective [Unknown]
  - Weight increased [Unknown]
  - Dizziness [Unknown]
  - Abdominal pain [Unknown]
  - Blood pressure increased [Unknown]
  - Constipation [Not Recovered/Not Resolved]
  - Abdominal distension [Unknown]
  - Flatulence [Unknown]

NARRATIVE: CASE EVENT DATE: 20230301
